FAERS Safety Report 13593239 (Version 1)
Quarter: 2017Q2

REPORT INFORMATION
  Report Type: Spontaneous
  Country: US (occurrence: US)
  Receive Date: 20170530
  Receipt Date: 20170530
  Transmission Date: 20170830
  Serious: No
  Sender: FDA-Public Use
  Company Number: US-AMGEN-USASP2017080077

PATIENT
  Age: 67 Year
  Sex: Male

DRUGS (8)
  1. ENBREL [Suspect]
     Active Substance: ETANERCEPT
     Indication: PRODUCT USED FOR UNKNOWN INDICATION
     Dosage: 50 MG, QWK
     Route: 058
  2. CELECOXIB. [Concomitant]
     Active Substance: CELECOXIB
     Dosage: 200 MG, UNK
  3. PREDNISONE. [Concomitant]
     Active Substance: PREDNISONE
     Dosage: 10 MG, UNK
  4. FOLIC ACID. [Concomitant]
     Active Substance: FOLIC ACID
     Dosage: 1 MG, UNK
  5. HYDROCODONE [Concomitant]
     Active Substance: HYDROCODONE
     Dosage: 10-325 MG, UNK
  6. LOSARTAN POTASSIUM. [Concomitant]
     Active Substance: LOSARTAN POTASSIUM
     Dosage: 50 MG, UNK
  7. METHOTREXATE. [Concomitant]
     Active Substance: METHOTREXATE
     Dosage: 2.5 MG, UNK
  8. AMLODIPINE [Concomitant]
     Active Substance: AMLODIPINE BESYLATE
     Dosage: 10 MG, UNK

REACTIONS (1)
  - Colonoscopy [Recovered/Resolved]

NARRATIVE: CASE EVENT DATE: 201705
